FAERS Safety Report 7220336-9 (Version None)
Quarter: 2011Q1

REPORT INFORMATION
  Report Type: 
  Country: None (occurrence: None)
  Receive Date: 20110111
  Receipt Date: 20110104
  Transmission Date: 20110831
  Serious: Yes (Hospitalization, Other)
  Sender: FDA-Public Use
  Company Number: US-ABBOTT-11P-163-0695374-00

PATIENT
  Sex: Male
  Weight: 70.37 kg

DRUGS (4)
  1. AMIODARONE [Concomitant]
     Indication: CARDIAC FAILURE CONGESTIVE
     Dates: start: 20100801
  2. HUMIRA [Suspect]
     Indication: OSTEOARTHRITIS
     Dates: start: 20101201, end: 20110101
  3. HUMIRA [Suspect]
     Indication: GOUT
  4. HUMIRA [Suspect]
     Indication: RHEUMATOID ARTHRITIS
     Dates: start: 20090101, end: 20100801

REACTIONS (2)
  - CARDIAC FAILURE CONGESTIVE [None]
  - CORONARY ARTERY OCCLUSION [None]
